FAERS Safety Report 17567125 (Version 1)
Quarter: 2020Q1

REPORT INFORMATION
  Report Type: Spontaneous
  Country: US (occurrence: US)
  Receive Date: 20200320
  Receipt Date: 20200320
  Transmission Date: 20200409
  Serious: No
  Sender: FDA-Public Use
  Company Number: US-TEVA-2020-US-1206730

PATIENT
  Sex: Female
  Weight: 55.34 kg

DRUGS (4)
  1. PREGABALIN-TEVA [Suspect]
     Active Substance: PREGABALIN
     Indication: FIBROMYALGIA
  2. PREGABALIN-NOVADOSE [Suspect]
     Active Substance: PREGABALIN
     Indication: FIBROMYALGIA
     Route: 065
  3. PREGABALIN-AURO [Suspect]
     Active Substance: PREGABALIN
     Indication: FIBROMYALGIA
     Route: 065
  4. LYRICA [Suspect]
     Active Substance: PREGABALIN
     Indication: FIBROMYALGIA
     Route: 065
     Dates: start: 20200219

REACTIONS (6)
  - Balance disorder [Unknown]
  - Visual impairment [Unknown]
  - Impaired quality of life [Unknown]
  - Swelling face [Unknown]
  - Swelling [Unknown]
  - Thinking abnormal [Unknown]
